FAERS Safety Report 24317239 (Version 1)
Quarter: 2024Q3

REPORT INFORMATION
  Report Type: Spontaneous
  Country: US (occurrence: None)
  Receive Date: 20240912
  Receipt Date: 20240912
  Transmission Date: 20241016
  Serious: Yes (Other)
  Sender: Public
  Company Number: None

PATIENT
  Age: 60 Year
  Sex: Female
  Weight: 64 kg

DRUGS (2)
  1. CEFTRIAXONE [Suspect]
     Active Substance: CEFTRIAXONE\CEFTRIAXONE SODIUM
     Indication: Pneumonia
     Dosage: FREQUENCY : DAILY;?
     Route: 042
     Dates: start: 20240904, end: 20240908
  2. IMMUNE GLOBULIN NOS [Suspect]
     Active Substance: IMMUNE GLOBULIN NOS
     Indication: Guillain-Barre syndrome
     Dosage: FREQUENCY : DAILY;?
     Route: 042
     Dates: start: 20240831, end: 20240905

REACTIONS (7)
  - Guillain-Barre syndrome [None]
  - Liver function test increased [None]
  - Aspartate aminotransferase increased [None]
  - Alanine aminotransferase increased [None]
  - Pneumonia [None]
  - Therapy change [None]
  - Drug-induced liver injury [None]

NARRATIVE: CASE EVENT DATE: 20240904
